FAERS Safety Report 11728250 (Version 4)
Quarter: 2015Q4

REPORT INFORMATION
  Report Type: Spontaneous
  Country: US (occurrence: US)
  Receive Date: 20151112
  Receipt Date: 20151229
  Transmission Date: 20160304
  Serious: No
  Sender: FDA-Public Use
  Company Number: US-PFIZER INC-2015267960

PATIENT
  Age: 67 Year
  Sex: Female
  Weight: 69 kg

DRUGS (12)
  1. PRILOSEC [Suspect]
     Active Substance: OMEPRAZOLE MAGNESIUM
     Dosage: UNK
  2. CALCIUM [Concomitant]
     Active Substance: CALCIUM
     Dosage: 300 MG, 2X/DAY (WITH MEALS)
     Route: 048
     Dates: start: 20150804
  3. IBUPROFEN. [Concomitant]
     Active Substance: IBUPROFEN
     Dosage: 200 MG, AS NEEDED
     Route: 048
     Dates: start: 20150804
  4. SUTENT [Suspect]
     Active Substance: SUNITINIB MALATE
     Indication: RENAL CANCER
     Dosage: 50 MG, CYCLIC (28 DAYS ON, 14 DAYS OFF)
     Dates: start: 20150811, end: 20151027
  5. SUTENT [Suspect]
     Active Substance: SUNITINIB MALATE
     Indication: RENAL CANCER STAGE IV
     Dosage: UNK
  6. BENADRYL [Concomitant]
     Active Substance: DIPHENHYDRAMINE HYDROCHLORIDE
     Dosage: 25 MG, AS NEEDED
     Dates: start: 20150804
  7. HYDROCORTISONE. [Concomitant]
     Active Substance: HYDROCORTISONE
     Dosage: UNK, AS NEEDED (0.5 % TOPICAL CREAM)
     Route: 061
     Dates: start: 20150804
  8. BIOTIN [Concomitant]
     Active Substance: BIOTIN
     Dosage: 5000 ?G, DAILY (2DF OF 2500 UG)
     Route: 048
     Dates: start: 20150803
  9. MELATONIN [Concomitant]
     Active Substance: MELATONIN
     Dosage: 500 ?G, 1X/DAY (AT BEDTIME )
     Route: 048
     Dates: start: 20150804
  10. TYLENOL [Concomitant]
     Active Substance: ACETAMINOPHEN
     Dosage: 325 MG, AS NEEDED
     Dates: start: 20150804
  11. ASPIRIN-81 [Concomitant]
     Dosage: 81 MG, 1X/DAY
     Route: 048
     Dates: start: 20150803
  12. BABY ASPIRIN [Concomitant]
     Active Substance: ASPIRIN
     Dosage: UNK

REACTIONS (9)
  - Vomiting [Unknown]
  - Cough [Recovering/Resolving]
  - Abdominal discomfort [Unknown]
  - Disease progression [Unknown]
  - Gastrooesophageal reflux disease [Unknown]
  - Dyspnoea [Not Recovered/Not Resolved]
  - Renal cancer [Unknown]
  - Nausea [Unknown]
  - Hypersensitivity [Recovering/Resolving]

NARRATIVE: CASE EVENT DATE: 2015
